FAERS Safety Report 23103493 (Version 1)
Quarter: 2023Q4

REPORT INFORMATION
  Report Type: Spontaneous
  Country: US (occurrence: None)
  Receive Date: 20231024
  Receipt Date: 20231024
  Transmission Date: 20240110
  Serious: Yes (Death)
  Sender: FDA-Public Use
  Company Number: None

PATIENT
  Age: 64 Year
  Sex: Female

DRUGS (2)
  1. VINORELBINE [Suspect]
     Active Substance: VINORELBINE TARTRATE
     Indication: Non-small cell lung cancer
     Dosage: OTHER FREQUENCY : DAY OF TX;?
     Route: 042
  2. NS 50 ML PB Baxter Bag [Concomitant]
     Dates: start: 20231020, end: 20231020

REACTIONS (3)
  - Hypersensitivity [None]
  - Loss of consciousness [None]
  - Cardio-respiratory arrest [None]

NARRATIVE: CASE EVENT DATE: 20231020
